FAERS Safety Report 16285931 (Version 1)
Quarter: 2019Q2

REPORT INFORMATION
  Report Type: Spontaneous
  Country: US (occurrence: US)
  Receive Date: 20190508
  Receipt Date: 20190508
  Transmission Date: 20190711
  Serious: No
  Sender: FDA-Public Use
  Company Number: US-FDC LIMITED-2018RIS00615

PATIENT
  Sex: Male
  Weight: 99.77 kg

DRUGS (1)
  1. TIMOLOL MALEATE. [Suspect]
     Active Substance: TIMOLOL MALEATE
     Indication: GLAUCOMA
     Dosage: 1 GTT IN EACH EYE, 2X/DAY
     Route: 047
     Dates: start: 2018, end: 2018

REACTIONS (3)
  - Nasopharyngitis [Recovering/Resolving]
  - Conjunctivitis [Recovering/Resolving]
  - Suspected product quality issue [Unknown]

NARRATIVE: CASE EVENT DATE: 2018
